FAERS Safety Report 4911103-7 (Version None)
Quarter: 2006Q1

REPORT INFORMATION
  Report Type: 
  Country: None (occurrence: None)
  Receive Date: 20060209
  Receipt Date: 20060202
  Transmission Date: 20060701
  Serious: Yes (Disabling, Congenital Anomaly)
  Sender: FDA-Public Use
  Company Number: 2006010514

PATIENT
  Age: 1 Day
  Sex: Female
  Weight: 3.29 kg

DRUGS (1)
  1. CABERGOLINE [Suspect]
     Indication: HYPERPROLACTINAEMIA
     Dosage: 0.25 MG

REACTIONS (3)
  - DRUG EXPOSURE BEFORE PREGNANCY [None]
  - MATERNAL DRUGS AFFECTING FOETUS [None]
  - VENTRICULAR SEPTAL DEFECT [None]
